FAERS Safety Report 7496132-4 (Version None)
Quarter: 2011Q2

REPORT INFORMATION
  Report Type: 
  Country: None (occurrence: None)
  Receive Date: 20110520
  Receipt Date: 20110520
  Transmission Date: 20111010
  Serious: Yes (Other)
  Sender: FDA-Public Use
  Company Number: None

PATIENT
  Age: 52 Year
  Sex: Female
  Weight: 70.3075 kg

DRUGS (1)
  1. LYRICA [Suspect]
     Indication: NEUROPATHY PERIPHERAL
     Dosage: 150 MG BID PO
     Route: 048
     Dates: start: 20100601, end: 20110301

REACTIONS (7)
  - ATAXIA [None]
  - DYSKINESIA [None]
  - BLOOD FOLATE DECREASED [None]
  - OEDEMA PERIPHERAL [None]
  - PAIN IN EXTREMITY [None]
  - ABASIA [None]
  - PLATELET COUNT DECREASED [None]
